FAERS Safety Report 10423677 (Version 1)
Quarter: 2014Q3

REPORT INFORMATION
  Report Type: Spontaneous
  Country: US (occurrence: US)
  Receive Date: 20140902
  Receipt Date: 20140902
  Transmission Date: 20150326
  Serious: Yes (Hospitalization)
  Sender: FDA-Public Use
  Company Number: PHHY2014US106842

PATIENT
  Age: 62 Year
  Sex: Female

DRUGS (1)
  1. LEVODOPA+CARBIDOPA [Suspect]
     Active Substance: CARBIDOPA\LEVODOPA
     Indication: PARKINSON^S DISEASE

REACTIONS (13)
  - Aggression [Recovering/Resolving]
  - Mania [Recovering/Resolving]
  - Hallucination [Recovering/Resolving]
  - Anhedonia [Recovering/Resolving]
  - Dopamine dysregulation syndrome [Recovering/Resolving]
  - Impatience [Recovering/Resolving]
  - Compulsive shopping [Recovering/Resolving]
  - Dysphoria [Recovering/Resolving]
  - Suicidal ideation [Recovering/Resolving]
  - Stereotypy [Recovering/Resolving]
  - Irritability [Recovering/Resolving]
  - Panic attack [Recovering/Resolving]
  - Anxiety [Recovering/Resolving]
